FAERS Safety Report 19912894 (Version 2)
Quarter: 2021Q4

REPORT INFORMATION
  Report Type: Spontaneous
  Country: JP (occurrence: JP)
  Receive Date: 20211004
  Receipt Date: 20211103
  Transmission Date: 20220303
  Serious: No
  Sender: FDA-Public Use
  Company Number: JP-FERRING-EVA202101479FERRINGPH

PATIENT
  Sex: Female

DRUGS (1)
  1. MENOTROPINS [Suspect]
     Active Substance: MENOTROPINS
     Indication: Infertility
     Dosage: UNK, 1 TIME DAILY
     Route: 065

REACTIONS (3)
  - Contraindicated product administered [Unknown]
  - Labelled drug-disease interaction medication error [Unknown]
  - Off label use [Unknown]
